FAERS Safety Report 20763163 (Version 1)
Quarter: 2022Q2

REPORT INFORMATION
  Report Type: Spontaneous
  Country: JP (occurrence: JP)
  Receive Date: 20220428
  Receipt Date: 20220428
  Transmission Date: 20220721
  Serious: Yes (Other)
  Sender: FDA-Public Use
  Company Number: JP-PFIZER INC-202200611455

PATIENT
  Age: 63 Year
  Sex: Female

DRUGS (2)
  1. CORTRIL [Suspect]
     Active Substance: HYDROCORTISONE
     Indication: Colitis
     Dosage: 10MGX1.5TABLET (1 TABLET IN THE MORNING, 0.5 TABLET IN THE EVENING)
     Route: 048
  2. BUDESONIDE [Concomitant]
     Active Substance: BUDESONIDE
     Indication: Colitis
     Dosage: UNK

REACTIONS (1)
  - Fracture [Unknown]
